FAERS Safety Report 18044590 (Version 1)
Quarter: 2020Q3

REPORT INFORMATION
  Report Type: Spontaneous
  Country: US (occurrence: US)
  Receive Date: 20200720
  Receipt Date: 20200720
  Transmission Date: 20201103
  Serious: Yes (Disabling)
  Sender: FDA-Public Use
  Company Number: None

PATIENT
  Age: 37 Year
  Sex: Male
  Weight: 68 kg

DRUGS (3)
  1. CETIRIZINE [Concomitant]
     Active Substance: CETIRIZINE HYDROCHLORIDE
  2. SERTRALINE HCL 25MG TABLET [Suspect]
     Active Substance: SERTRALINE HYDROCHLORIDE
     Indication: MAJOR DEPRESSION
     Dosage: ?          QUANTITY:1 TABLET(S);?
     Route: 048
     Dates: start: 20200615, end: 20200619
  3. SERTRALINE HCL 25MG TABLET [Suspect]
     Active Substance: SERTRALINE HYDROCHLORIDE
     Indication: TINNITUS
     Dosage: ?          QUANTITY:1 TABLET(S);?
     Route: 048
     Dates: start: 20200615, end: 20200619

REACTIONS (3)
  - Migraine [None]
  - Tinnitus [None]
  - Hyperacusis [None]

NARRATIVE: CASE EVENT DATE: 20200615
